FAERS Safety Report 11635599 (Version 1)
Quarter: 2015Q4

REPORT INFORMATION
  Report Type: Spontaneous
  Country: US (occurrence: US)
  Receive Date: 20151016
  Receipt Date: 20151016
  Transmission Date: 20160304
  Serious: Yes (Other)
  Sender: FDA-Public Use
  Company Number: US-PFIZER INC-2015331294

PATIENT
  Age: 58 Year
  Sex: Female
  Weight: 104 kg

DRUGS (2)
  1. IBRANCE [Suspect]
     Active Substance: PALBOCICLIB
     Indication: BREAST CANCER METASTATIC
     Dosage: 125 MG, CYCLIC (ONCE A DAY, 1 THROUGH 21 DAYS THEN OFF A WEEK)
     Route: 048
     Dates: start: 20150602
  2. LETROZOLE. [Suspect]
     Active Substance: LETROZOLE
     Indication: BREAST CANCER METASTATIC
     Dosage: 2.5 MG, ONCE A DAY EVERY DAY
     Route: 048

REACTIONS (3)
  - White blood cell count decreased [Recovered/Resolved]
  - Pre-existing condition improved [Recovered/Resolved]
  - Therapeutic response unexpected [Recovered/Resolved]
